FAERS Safety Report 5450315-3 (Version None)
Quarter: 2007Q3

REPORT INFORMATION
  Report Type: 
  Country: None (occurrence: None)
  Receive Date: 20070912
  Receipt Date: 20070903
  Transmission Date: 20080115
  Serious: Yes (Other)
  Sender: FDA-Public Use
  Company Number: NL-ASTRAZENECA-2007AC01645

PATIENT
  Sex: Male

DRUGS (1)
  1. NEXIUM [Suspect]
     Indication: VOMITING
     Route: 064
     Dates: start: 20050317

REACTIONS (2)
  - ASTHMA [None]
  - CONSTIPATION [None]
